FAERS Safety Report 7669933 (Version 3)
Quarter: 2012Q4

REPORT INFORMATION
  Report Type: 
  Country: US (occurrence: US)
  Receive Date: 20101116
  Receipt Date: 20121225
  Transmission Date: 20130627
  Serious: No
  Sender: FDA-Public Use
  Company Number: US-JNJFOC-20101102320

PATIENT
  Sex: Male
  Weight: 110.68 kg

DRUGS (3)
  1. DURAGESIC [Suspect]
     Indication: PAIN IN EXTREMITY
     Route: 062
     Dates: start: 2010
  2. DURAGESIC [Suspect]
     Indication: MUSCULOSKELETAL PAIN
     Route: 062
     Dates: start: 2010
  3. DURAGESIC [Suspect]
     Indication: PRODUCT USED FOR UNKNOWN INDICATION
     Route: 062

REACTIONS (5)
  - Wrong technique in drug usage process [Not Recovered/Not Resolved]
  - Product quality issue [Unknown]
  - Incorrect dose administered [Unknown]
  - Product quality issue [Unknown]
  - Activities of daily living impaired [Unknown]
